FAERS Safety Report 12602467 (Version 1)
Quarter: 2016Q3

REPORT INFORMATION
  Report Type: Spontaneous
  Country: US (occurrence: US)
  Receive Date: 20160728
  Receipt Date: 20160728
  Transmission Date: 20161109
  Serious: Yes (Other)
  Sender: FDA-Public Use
  Company Number: US-AMGEN-USASP2016086601

PATIENT
  Age: 70 Year
  Sex: Female
  Weight: 45.35 kg

DRUGS (2)
  1. FENOFIBRATE. [Concomitant]
     Active Substance: FENOFIBRATE
     Indication: HYPERLIPIDAEMIA
     Dosage: 145 MG, QD
     Dates: start: 20160616
  2. PROLIA [Suspect]
     Active Substance: DENOSUMAB
     Indication: OSTEOPOROSIS
     Dosage: 60 MG, QMO
     Route: 058
     Dates: start: 20131011, end: 20160704

REACTIONS (8)
  - Malaise [Recovered/Resolved]
  - Blood calcium abnormal [Unknown]
  - Asthenia [Recovered/Resolved]
  - Blood potassium increased [Recovered/Resolved]
  - Mobility decreased [Recovered/Resolved]
  - Pain in extremity [Recovering/Resolving]
  - Therapeutic response unexpected [Unknown]
  - Myalgia [Recovering/Resolving]

NARRATIVE: CASE EVENT DATE: 20160613
